FAERS Safety Report 9386089 (Version 1)
Quarter: 2013Q3

REPORT INFORMATION
  Report Type: Spontaneous
  Country: US (occurrence: US)
  Receive Date: 20130706
  Receipt Date: 20130706
  Transmission Date: 20140515
  Serious: Yes (Hospitalization)
  Sender: FDA-Public Use
  Company Number: US-B.I. PHARMACEUTICALS,INC./RIDGEFIELD-2013-BI-19086BP

PATIENT
  Age: 54 Year
  Sex: Female

DRUGS (8)
  1. SPIRIVA [Suspect]
     Indication: CHRONIC OBSTRUCTIVE PULMONARY DISEASE
     Dosage: 18 MCG
     Route: 055
     Dates: start: 2012
  2. COMBIVENT [Suspect]
     Indication: CHRONIC OBSTRUCTIVE PULMONARY DISEASE
     Dosage: STRENGTH: 18 MCG / 103 MCG; DAILY DOSE: 144 MCG / 824 MCG
     Route: 055
     Dates: start: 2002, end: 20130617
  3. COMBIVENT [Suspect]
     Indication: ASTHMA
  4. COMBIVENT [Suspect]
     Indication: CHRONIC OBSTRUCTIVE PULMONARY DISEASE
     Dosage: STRENGTH: 20 MCG / 100 MCG; DAILY DOSE: 80 MCG / 400 MCG
     Route: 055
     Dates: start: 20130618
  5. COMBIVENT [Suspect]
     Indication: ASTHMA
  6. DUONEBS [Concomitant]
     Indication: ASTHMA
     Dosage: FORMULATION: INHALATION SOLUTION
     Route: 055
  7. DUONEBS [Concomitant]
     Indication: CHRONIC OBSTRUCTIVE PULMONARY DISEASE
  8. ALBUTEROL [Concomitant]
     Indication: ASTHMA
     Route: 055

REACTIONS (7)
  - Pneumonia [Recovered/Resolved]
  - Drug prescribing error [Recovered/Resolved]
  - Drug prescribing error [Not Recovered/Not Resolved]
  - Sinusitis [Recovered/Resolved]
  - Cough [Not Recovered/Not Resolved]
  - Sinus congestion [Not Recovered/Not Resolved]
  - Drug ineffective [Not Recovered/Not Resolved]
